FAERS Safety Report 7634178-3 (Version None)
Quarter: 2011Q3

REPORT INFORMATION
  Report Type: 
  Country: None (occurrence: None)
  Receive Date: 20110725
  Receipt Date: 20110712
  Transmission Date: 20111222
  Serious: No
  Sender: FDA-Public Use
  Company Number: US-ENDO PHARMACEUTICALS INC.-PERC20110073

PATIENT
  Age: 68 Year
  Sex: Male
  Weight: 71.278 kg

DRUGS (17)
  1. RESTORIL [Concomitant]
     Dosage: UNK
     Route: 048
     Dates: start: 20050806
  2. LOPRESSOR [Concomitant]
     Dosage: UNK
     Route: 048
     Dates: start: 20090625
  3. INSPRA [Concomitant]
     Dosage: UNK
     Route: 048
     Dates: start: 20050806
  4. ALTACE [Concomitant]
     Dosage: UNK
     Route: 048
     Dates: start: 20090626
  5. BLINDED THERAPY [Suspect]
     Indication: RHEUMATOID ARTHRITIS
  6. NEXIUM [Concomitant]
     Dosage: UNK
     Route: 048
     Dates: start: 20081030
  7. OXYCONTIN [Suspect]
     Route: 048
     Dates: start: 20110418, end: 20110420
  8. BLINDED THERAPY [Suspect]
     Indication: OSTEOARTHRITIS
     Dosage: UNK
     Route: 048
     Dates: start: 20081030
  9. ZOLOFT [Concomitant]
     Dosage: UNK
     Route: 048
     Dates: start: 20050806
  10. PLAVIX [Concomitant]
     Dosage: UNK
     Route: 048
     Dates: start: 20050806
  11. NITROGLYCERIN [Concomitant]
     Dosage: UNK
     Dates: start: 20050806
  12. PERCOCET [Suspect]
     Dosage: 2 TABS
     Route: 048
     Dates: start: 20110418, end: 20110420
  13. VICODIN [Suspect]
     Dosage: 2 TABS
     Route: 048
     Dates: start: 20110418, end: 20110420
  14. HALDOL [Concomitant]
     Dosage: UNK
  15. LIPITOR [Concomitant]
     Dosage: UNK
     Route: 048
     Dates: start: 20050806
  16. NORVASC [Concomitant]
     Dosage: UNK
     Route: 048
     Dates: start: 20050806
  17. LOVENOX [Concomitant]
     Dosage: UNK
     Dates: start: 20110419, end: 20110429

REACTIONS (2)
  - DELIRIUM [None]
  - OVERDOSE [None]
